FAERS Safety Report 20731482 (Version 2)
Quarter: 2022Q3

REPORT INFORMATION
  Report Type: Spontaneous
  Country: US (occurrence: US)
  Receive Date: 20220420
  Receipt Date: 20220916
  Transmission Date: 20221027
  Serious: No
  Sender: FDA-Public Use
  Company Number: GB-SA-SAC20220417000049

PATIENT
  Age: 59 Year
  Sex: Male

DRUGS (16)
  1. DUPIXENT [Suspect]
     Active Substance: DUPILUMAB
     Indication: Dermatitis atopic
     Dosage: 300 MG, QOW
     Route: 058
     Dates: start: 20210818
  2. CEVIMELINE [Concomitant]
     Active Substance: CEVIMELINE
     Dosage: 30MG
  3. CICLOPIROX [Concomitant]
     Active Substance: CICLOPIROX
     Dosage: 0.77 %
  4. DIAZEPAM [Concomitant]
     Active Substance: DIAZEPAM
     Dosage: 10 MG
  5. PROMETHAZINE HYDROCHLORIDE [Concomitant]
     Active Substance: PROMETHAZINE HYDROCHLORIDE
     Dosage: UNK
  6. SILDENAFIL [Concomitant]
     Active Substance: SILDENAFIL
     Dosage: 20MG
  7. TERBINAFINE [Concomitant]
     Active Substance: TERBINAFINE
     Dosage: 250 MG
  8. TRAMADOL [Concomitant]
     Active Substance: TRAMADOL
     Dosage: 50MG
  9. URSODIOL [Concomitant]
     Active Substance: URSODIOL
     Dosage: 300MG
  10. AMLODIPINE [Concomitant]
     Active Substance: AMLODIPINE BESYLATE
     Dosage: 2.5 MG
     Route: 048
  11. AMLODIPINE [Concomitant]
     Active Substance: AMLODIPINE BESYLATE
     Dosage: 5 MG
     Route: 065
  12. TESTOSTERONE [Concomitant]
     Active Substance: TESTOSTERONE
     Dosage: 1.62 %
  13. CYCLOBENZAPRINE [Concomitant]
     Active Substance: CYCLOBENZAPRINE
     Dosage: 10 MG
     Route: 048
  14. HYDROCODONE BITARTRATE AND ACETAMINOPHEN [Concomitant]
     Active Substance: ACETAMINOPHEN\HYDROCODONE BITARTRATE
     Dosage: 5-325 MG
     Route: 048
  15. METHOCARBAMOL [Concomitant]
     Active Substance: METHOCARBAMOL
     Dosage: 500 MG
     Route: 048
  16. METHOCARBAMOL [Concomitant]
     Active Substance: METHOCARBAMOL
     Dosage: 750 MG

REACTIONS (3)
  - Sleep disorder [Unknown]
  - Fatigue [Unknown]
  - Dermatitis atopic [Unknown]
